FAERS Safety Report 20308450 (Version 6)
Quarter: 2022Q4

REPORT INFORMATION
  Report Type: Report from Study
  Country: CA (occurrence: CA)
  Receive Date: 20220107
  Receipt Date: 20221230
  Transmission Date: 20230112
  Serious: Yes (Death, Hospitalization, Other)
  Sender: FDA-Public Use
  Company Number: CA-HLS-202200036

PATIENT
  Age: 77 Year
  Sex: Female

DRUGS (2)
  1. CLOZARIL [Suspect]
     Active Substance: CLOZAPINE
     Indication: Product used for unknown indication
     Route: 048
     Dates: start: 20030709, end: 20221109
  2. CLOZARIL [Suspect]
     Active Substance: CLOZAPINE
     Indication: Product used for unknown indication
     Dosage: 100 MG AT BEDTIME
     Route: 065

REACTIONS (3)
  - Anaemia [Fatal]
  - Treatment noncompliance [Unknown]
  - Nasopharyngeal tumour [Fatal]

NARRATIVE: CASE EVENT DATE: 20221004
